FAERS Safety Report 15651201 (Version 1)
Quarter: 2018Q4

REPORT INFORMATION
  Report Type: Spontaneous
  Country: FR (occurrence: FR)
  Receive Date: 20181123
  Receipt Date: 20181123
  Transmission Date: 20190205
  Serious: Yes (Other)
  Sender: FDA-Public Use
  Company Number: FR-PFIZER INC-2018482172

PATIENT
  Age: 30 Year
  Sex: Female

DRUGS (1)
  1. VFEND [Suspect]
     Active Substance: VORICONAZOLE
     Indication: ASPERGILLUS INFECTION
     Dosage: 8 MG/KG, DAILY
     Route: 042
     Dates: start: 201704

REACTIONS (2)
  - Respiratory distress [Not Recovered/Not Resolved]
  - Drug ineffective [Not Recovered/Not Resolved]
